FAERS Safety Report 8350197-6 (Version None)
Quarter: 2012Q2

REPORT INFORMATION
  Report Type: 
  Country: None (occurrence: None)
  Receive Date: 20120510
  Receipt Date: 20120503
  Transmission Date: 20120825
  Serious: Yes (Other)
  Sender: FDA-Public Use
  Company Number: US-BAYER-2012-028777

PATIENT
  Age: 31 Year
  Sex: Female
  Weight: 115.19 kg

DRUGS (8)
  1. BACTRIM [Concomitant]
     Indication: ACUTE SINUSITIS
     Dosage: UNK UNK, BID
  2. YAZ [Suspect]
     Dosage: UNK
     Dates: start: 20080301, end: 20090201
  3. YASMIN [Suspect]
     Dosage: UNK
     Dates: start: 20080301, end: 20090201
  4. MOTRIN [Concomitant]
     Dosage: 600 MG, TID
  5. DEXTROMETHORPHAN HYDROBROMIDE [Concomitant]
  6. DROSPIRENONE AND ETHINYL ESTRADIOL [Suspect]
     Dosage: UNK
     Dates: start: 20080301, end: 20090201
  7. IBUPROFEN (ADVIL) [Concomitant]
  8. LOESTRIN 1.5/30 [Concomitant]
     Indication: CONTRACEPTION

REACTIONS (6)
  - GENERAL PHYSICAL HEALTH DETERIORATION [None]
  - DEEP VEIN THROMBOSIS [None]
  - INJURY [None]
  - EMOTIONAL DISTRESS [None]
  - PAIN [None]
  - ANXIETY [None]
